FAERS Safety Report 12331972 (Version 5)
Quarter: 2016Q3

REPORT INFORMATION
  Report Type: Spontaneous
  Country: US (occurrence: US)
  Receive Date: 20160504
  Receipt Date: 20160805
  Transmission Date: 20161109
  Serious: No
  Sender: FDA-Public Use
  Company Number: US-PFIZER INC-2016209044

PATIENT
  Age: 89 Year
  Sex: Female

DRUGS (4)
  1. MARCAINE [Suspect]
     Active Substance: BUPIVACAINE HYDROCHLORIDE
     Dosage: UNK (1 SHOT), SINGLE
     Dates: start: 20160510, end: 20160510
  2. ADVIL [Suspect]
     Active Substance: IBUPROFEN
     Indication: INFLAMMATION
     Dosage: 400 MG, 3X/DAY (200MG TWO TABLETS THREE TIMES A DAY FOR 10 DAYS(2 PILL 200 MG THREE DAILY)
     Route: 048
     Dates: start: 20150715, end: 20150725
  3. ADVIL [Suspect]
     Active Substance: IBUPROFEN
     Indication: PAIN IN EXTREMITY
  4. KENALOG [Suspect]
     Active Substance: TRIAMCINOLONE ACETONIDE
     Dosage: UNK, SINGLE (1 SHOT)
     Dates: start: 20160510, end: 20160510

REACTIONS (16)
  - Rash macular [Not Recovered/Not Resolved]
  - Bowel movement irregularity [Not Recovered/Not Resolved]
  - Visual impairment [Not Recovered/Not Resolved]
  - Myalgia [Recovered/Resolved]
  - Pre-existing condition improved [Recovered/Resolved]
  - Reaction to drug excipients [Unknown]
  - Rash [Recovered/Resolved]
  - Erythema [Not Recovered/Not Resolved]
  - Chapped lips [Recovered/Resolved]
  - Tinnitus [Not Recovered/Not Resolved]
  - Retinal scar [Not Recovered/Not Resolved]
  - Therapeutic response unexpected [Recovered/Resolved]
  - Hypoacusis [Not Recovered/Not Resolved]
  - Weight increased [Recovered/Resolved]
  - Arthralgia [Recovered/Resolved]
  - Eye disorder [Unknown]

NARRATIVE: CASE EVENT DATE: 2015
